FAERS Safety Report 7700595-6 (Version None)
Quarter: 2011Q3

REPORT INFORMATION
  Report Type: 
  Country: None (occurrence: None)
  Receive Date: 20110822
  Receipt Date: 20110821
  Transmission Date: 20111222
  Serious: Yes (Other)
  Sender: FDA-Public Use
  Company Number: US-PFIZER INC-2011192718

PATIENT
  Sex: Female

DRUGS (1)
  1. ADVIL LIQUI-GELS [Suspect]
     Indication: HEADACHE
     Dosage: UNK, EVERY 6 HOURS
     Route: 048
     Dates: start: 20110817

REACTIONS (2)
  - DYSPNOEA [None]
  - ABDOMINAL PAIN UPPER [None]
